FAERS Safety Report 4489136-7 (Version None)
Quarter: 2004Q4

REPORT INFORMATION
  Report Type: 
  Country: None (occurrence: None)
  Receive Date: 20041029
  Receipt Date: 20041015
  Transmission Date: 20050328
  Serious: Yes (Hospitalization, Disabling)
  Sender: FDA-Public Use
  Company Number: MX-MERCK-0410MEX00003

PATIENT
  Age: 55 Year
  Sex: Male
  Weight: 75 kg

DRUGS (7)
  1. VIOXX [Suspect]
     Indication: ARTHRITIS
     Route: 048
     Dates: start: 20030129, end: 20040328
  2. METHOTREXATE [Concomitant]
     Indication: ARTHRITIS
     Route: 048
     Dates: start: 19980123
  3. PREDNISONE [Concomitant]
     Indication: ARTHRITIS
     Route: 048
     Dates: start: 19890101
  4. FOSAMAX [Concomitant]
     Indication: OSTEOPOROSIS
     Route: 048
     Dates: start: 19990818
  5. RANITIDINE [Concomitant]
     Indication: GASTRITIS
     Route: 048
     Dates: start: 19880822
  6. CANDESARTAN [Concomitant]
     Indication: HYPERTENSION
     Route: 048
     Dates: start: 20040420
  7. LEFLUNOMIDE [Concomitant]
     Indication: ARTHRITIS
     Route: 048
     Dates: start: 20000308, end: 20040401

REACTIONS (1)
  - DEEP VEIN THROMBOSIS [None]
